FAERS Safety Report 22217363 (Version 11)
Quarter: 2024Q1

REPORT INFORMATION
  Report Type: Report from Study
  Country: US (occurrence: US)
  Receive Date: 20230417
  Receipt Date: 20240131
  Transmission Date: 20240410
  Serious: Yes (Other)
  Sender: FDA-Public Use
  Company Number: US-002147023-NVSC2023US087196

PATIENT
  Age: 58 Year
  Sex: Female

DRUGS (2)
  1. KISQALI [Suspect]
     Active Substance: RIBOCICLIB
     Indication: Breast cancer metastatic
     Dosage: 200 MG, 3- 200MG TABS
     Route: 048
     Dates: start: 20180101
  2. LETROZOLE [Suspect]
     Active Substance: LETROZOLE
     Indication: Breast cancer metastatic
     Dosage: UNK
     Route: 048
     Dates: start: 2018

REACTIONS (11)
  - Neoplasm malignant [Recovering/Resolving]
  - Hair texture abnormal [Not Recovered/Not Resolved]
  - Musculoskeletal stiffness [Recovering/Resolving]
  - Hot flush [Not Recovered/Not Resolved]
  - Joint stiffness [Unknown]
  - Alopecia [Unknown]
  - COVID-19 [Not Recovered/Not Resolved]
  - Asthenia [Unknown]
  - Hair growth abnormal [Unknown]
  - Diarrhoea [Unknown]
  - Joint noise [Unknown]

NARRATIVE: CASE EVENT DATE: 20231006
